FAERS Safety Report 24572630 (Version 3)
Quarter: 2025Q3

REPORT INFORMATION
  Report Type: Spontaneous
  Country: US (occurrence: US)
  Receive Date: 20241101
  Receipt Date: 20250926
  Transmission Date: 20251021
  Serious: Yes (Other)
  Sender: AMGEN
  Company Number: US-AMGEN-USASP2024213680

PATIENT
  Sex: Female

DRUGS (1)
  1. TEPEZZA [Suspect]
     Active Substance: TEPROTUMUMAB-TRBW
     Indication: Endocrine ophthalmopathy
     Route: 040
     Dates: start: 20220101, end: 2022

REACTIONS (4)
  - Endocrine ophthalmopathy [Not Recovered/Not Resolved]
  - Eye disorder [Not Recovered/Not Resolved]
  - Rheumatic disorder [Unknown]
  - Blood glucose increased [Unknown]
